FAERS Safety Report 14019386 (Version 1)
Quarter: 2017Q3

REPORT INFORMATION
  Report Type: Spontaneous
  Country: US (occurrence: US)
  Receive Date: 20170928
  Receipt Date: 20170928
  Transmission Date: 20171128
  Serious: Yes (Death, Hospitalization)
  Sender: FDA-Public Use
  Company Number: US-ALLERGAN-1754813US

PATIENT
  Age: 85 Year
  Sex: Female

DRUGS (5)
  1. CELEXA [Suspect]
     Active Substance: CITALOPRAM HYDROBROMIDE
     Indication: PRODUCT USED FOR UNKNOWN INDICATION
  2. LEVODOPA CARBID [Concomitant]
  3. NIFEDIPINE. [Concomitant]
     Active Substance: NIFEDIPINE
  4. ASPIRIN. [Concomitant]
     Active Substance: ASPIRIN
  5. NAMENDA [Concomitant]
     Active Substance: MEMANTINE HYDROCHLORIDE

REACTIONS (9)
  - Hallucination [Unknown]
  - Motor dysfunction [Unknown]
  - Gait disturbance [Unknown]
  - Condition aggravated [Unknown]
  - Death [Fatal]
  - Fall [Unknown]
  - Syncope [Unknown]
  - Dyspnoea [Unknown]
  - Contraindicated drug prescribed [Unknown]

NARRATIVE: CASE EVENT DATE: 2017
